FAERS Safety Report 21561994 (Version 1)
Quarter: 2022Q4

REPORT INFORMATION
  Report Type: Spontaneous
  Country: US (occurrence: None)
  Receive Date: 20221105
  Receipt Date: 20221105
  Transmission Date: 20230113
  Serious: Yes (Life-Threatening, Other)
  Sender: FDA-Public Use
  Company Number: None

PATIENT
  Age: 79 Year
  Sex: Female

DRUGS (1)
  1. VERZENIO [Suspect]
     Active Substance: ABEMACICLIB
     Dates: start: 20221025, end: 20221030

REACTIONS (5)
  - Nausea [None]
  - Vomiting [None]
  - Pain [None]
  - Tremor [None]
  - Fatigue [None]

NARRATIVE: CASE EVENT DATE: 20221030
